FAERS Safety Report 7766172-6 (Version None)
Quarter: 2011Q3

REPORT INFORMATION
  Report Type: 
  Country: None (occurrence: None)
  Receive Date: 20110921
  Receipt Date: 20110909
  Transmission Date: 20111222
  Serious: Yes (Hospitalization)
  Sender: FDA-Public Use
  Company Number: FR-GENENTECH-312949

PATIENT
  Sex: Female
  Weight: 62 kg

DRUGS (20)
  1. VINCRISTINE [Suspect]
     Indication: ACUTE LYMPHOCYTIC LEUKAEMIA
     Dosage: UNK
     Route: 065
     Dates: end: 20091110
  2. VALACYCLOVIR HYDROCHLORIDE [Concomitant]
     Indication: PRODUCT USED FOR UNKNOWN INDICATION
     Dosage: 3 UNK, UNK
     Route: 048
     Dates: start: 20091109
  3. CYTARABINE [Suspect]
     Dosage: 3400 UNK, UNK
     Route: 042
     Dates: start: 20091027, end: 20091028
  4. DEXAMETHASONE [Suspect]
     Indication: ACUTE LYMPHOCYTIC LEUKAEMIA
     Dosage: 10 UNK, X3
     Route: 048
     Dates: start: 20091027, end: 20091028
  5. PURINETHOL [Suspect]
     Indication: ACUTE LYMPHOCYTIC LEUKAEMIA
     Dosage: UNK
     Route: 065
     Dates: end: 20091110
  6. CYTARABINE [Suspect]
     Indication: ACUTE LYMPHOCYTIC LEUKAEMIA
     Dosage: 3100 UNK, X2
     Route: 042
     Dates: start: 20090718, end: 20090718
  7. METHOTREXATE [Suspect]
     Dosage: UNK
     Route: 048
     Dates: start: 20091116
  8. LUTENYL [Concomitant]
     Indication: PRODUCT USED FOR UNKNOWN INDICATION
     Dosage: 2 UNK, QD
     Route: 048
     Dates: start: 20091109
  9. METHOTREXATE [Concomitant]
     Indication: PRODUCT USED FOR UNKNOWN INDICATION
     Dosage: UNK
     Dates: start: 20080101
  10. ELSPAR [Suspect]
     Indication: ACUTE LYMPHOCYTIC LEUKAEMIA
     Dosage: 15000 UNK, X2
     Route: 042
     Dates: start: 20090718, end: 20090718
  11. ELSPAR [Suspect]
     Dosage: 17000 UNK, X2
     Route: 042
     Dates: start: 20091029, end: 20091029
  12. VINCRISTINE [Suspect]
     Dosage: UNK
     Route: 065
     Dates: start: 20091116
  13. BACTRIM [Concomitant]
     Indication: PRODUCT USED FOR UNKNOWN INDICATION
     Dosage: 3 UNK, QD
     Route: 048
     Dates: start: 20091109, end: 20091116
  14. RITUXIMAB [Suspect]
     Dosage: 638 UNK, X2
     Route: 042
     Dates: start: 20091029, end: 20091029
  15. NEXIUM [Concomitant]
     Indication: PRODUCT USED FOR UNKNOWN INDICATION
     Dosage: 1 UNK, UNK
     Route: 048
     Dates: start: 20091109
  16. LEXOMIL [Concomitant]
     Indication: PRODUCT USED FOR UNKNOWN INDICATION
     Dosage: .5 UNK, QD
     Route: 048
     Dates: start: 20091109
  17. RITUXIMAB [Suspect]
     Indication: ACUTE LYMPHOCYTIC LEUKAEMIA
     Dosage: 600 UNK, UNK
     Route: 042
     Dates: start: 20090716, end: 20090716
  18. METHOTREXATE [Suspect]
     Indication: ACUTE LYMPHOCYTIC LEUKAEMIA
     Dosage: UNK
     Route: 048
     Dates: end: 20091110
  19. PURINETHOL [Suspect]
     Dosage: UNK
     Route: 065
     Dates: start: 20091116
  20. FLUCONAZOLE [Concomitant]
     Indication: PRODUCT USED FOR UNKNOWN INDICATION
     Dosage: 1 UNK, QD
     Route: 048
     Dates: start: 20091109

REACTIONS (2)
  - DYSPHAGIA [None]
  - FEBRILE BONE MARROW APLASIA [None]
